FAERS Safety Report 6173697-6 (Version None)
Quarter: 2009Q2

REPORT INFORMATION
  Report Type: 
  Country: None (occurrence: None)
  Receive Date: 20090430
  Receipt Date: 20090416
  Transmission Date: 20091009
  Serious: Yes (Other)
  Sender: FDA-Public Use
  Company Number: PHHY2009BR14506

PATIENT
  Age: 59 Year
  Sex: Female
  Weight: 65 kg

DRUGS (9)
  1. FORASEQ [Suspect]
     Indication: INFLUENZA
     Dosage: 1 DF, BID
     Dates: start: 20090403
  2. FORASEQ [Suspect]
     Indication: DYSPNOEA
  3. ACETYLCYSTEINE [Concomitant]
     Dosage: 1 DF, QD
     Route: 048
     Dates: start: 20090403
  4. LEVOFLOXACIN [Concomitant]
     Dosage: 1 DF, QD
     Route: 048
     Dates: start: 20090403
  5. PREDSIM [Concomitant]
     Dosage: 1 DF, QD
     Route: 048
     Dates: start: 20090403
  6. AMBROXOL ACEFYLLINATE [Concomitant]
     Dosage: 1 DF, QD
     Route: 048
     Dates: start: 20090403
  7. ATROVENT [Concomitant]
     Dosage: 1 DF, Q4H
  8. BEROTEC [Concomitant]
     Dosage: 1 DF, Q4H
  9. LOSARTAN POTASSIUM [Concomitant]
     Indication: HYPERTENSION
     Dosage: 1 DF, QD
     Route: 048

REACTIONS (5)
  - ABNORMAL FAECES [None]
  - CHEILITIS [None]
  - ORAL DISORDER [None]
  - SKIN EXFOLIATION [None]
  - THERMAL BURN [None]
